FAERS Safety Report 7197918-6 (Version None)
Quarter: 2010Q4

REPORT INFORMATION
  Report Type: 
  Country: None (occurrence: None)
  Receive Date: 20101227
  Receipt Date: 20101221
  Transmission Date: 20110411
  Serious: Yes (Hospitalization)
  Sender: FDA-Public Use
  Company Number: US-BAXTER-2010BH030573

PATIENT
  Age: 15 Month
  Sex: Male

DRUGS (1)
  1. FEIBA VH [Suspect]
     Indication: HAEMOSTASIS
     Route: 042
     Dates: start: 20101217

REACTIONS (3)
  - INFUSION SITE EXTRAVASATION [None]
  - INFUSION SITE SWELLING [None]
  - SCREAMING [None]
